FAERS Safety Report 11667093 (Version 1)
Quarter: 2015Q4

REPORT INFORMATION
  Report Type: Spontaneous
  Country: US (occurrence: US)
  Receive Date: 20151027
  Receipt Date: 20151027
  Transmission Date: 20160304
  Serious: Yes (Hospitalization)
  Sender: FDA-Public Use
  Company Number: US-BAYER-2015-397735

PATIENT
  Age: 66 Year
  Sex: Female

DRUGS (10)
  1. ACETYLSALICYLIC ACID({=100 MG) [Suspect]
     Active Substance: ASPIRIN
     Indication: PRODUCT USED FOR UNKNOWN INDICATION
     Dosage: 81 MG, UNK
     Route: 048
  2. LASIX [Concomitant]
     Active Substance: FUROSEMIDE
     Dosage: UNK
     Route: 065
  3. SIMVASTATIN. [Concomitant]
     Active Substance: SIMVASTATIN
     Dosage: 40 MG, UNK
     Route: 065
  4. KLOR-CON [Concomitant]
     Active Substance: POTASSIUM CHLORIDE
     Dosage: 20 MEQ, UNK
     Route: 065
  5. XARELTO [Suspect]
     Active Substance: RIVAROXABAN
     Indication: EMBOLISM VENOUS
  6. POTASSIUM [Concomitant]
     Active Substance: POTASSIUM
     Dosage: 20 MEQ, UNK
     Route: 065
  7. XARELTO [Suspect]
     Active Substance: RIVAROXABAN
     Indication: DEEP VEIN THROMBOSIS
     Dosage: 20 MG, UNK
     Route: 048
     Dates: start: 20131204, end: 20140121
  8. SYNTHROID [Concomitant]
     Active Substance: LEVOTHYROXINE SODIUM
     Dosage: 200 ?G, UNK
     Route: 065
  9. DIOVAN [Concomitant]
     Active Substance: VALSARTAN
     Dosage: 80 MG, UNK
     Route: 065
  10. CARVEDILOL. [Concomitant]
     Active Substance: CARVEDILOL
     Dosage: 12.5 MG, BID
     Route: 065

REACTIONS (3)
  - Haematuria [Unknown]
  - Post procedural haematoma [Unknown]
  - Rectal haemorrhage [Recovered/Resolved]

NARRATIVE: CASE EVENT DATE: 20140101
